FAERS Safety Report 5122145-3 (Version None)
Quarter: 2006Q4

REPORT INFORMATION
  Report Type: 
  Country: None (occurrence: None)
  Receive Date: 20061004
  Receipt Date: 20061004
  Transmission Date: 20070319
  Serious: Yes (Hospitalization)
  Sender: FDA-Public Use
  Company Number: None

PATIENT
  Sex: Male
  Weight: 90 kg

DRUGS (12)
  1. CETUXIMAB   100 MG/50 ML   IMCLONE, BMS [Suspect]
     Indication: NEOPLASM
     Dosage: 500 MG WEEKLY IV DRIP
     Route: 041
     Dates: start: 20060828, end: 20060918
  2. ONDANSETRON [Concomitant]
  3. DEXAMETHASONE TAB [Concomitant]
  4. APREPITANT [Concomitant]
  5. LORAZEPAM [Concomitant]
  6. ACETAMINOPHEN [Concomitant]
  7. DIPHENHYDRAMINE HCL [Concomitant]
  8. EPOGEN [Concomitant]
  9. ASPIRITN [Concomitant]
  10. CRESTOR [Concomitant]
  11. TRENTAL [Concomitant]
  12. NAPROXEN [Concomitant]

REACTIONS (5)
  - ANAPHYLACTIC REACTION [None]
  - CHEST PAIN [None]
  - HYPOTENSION [None]
  - INFUSION RELATED REACTION [None]
  - SWELLING FACE [None]
